FAERS Safety Report 4781249-5 (Version None)
Quarter: 2005Q3

REPORT INFORMATION
  Report Type: 
  Country: None (occurrence: None)
  Receive Date: 20050914
  Receipt Date: 20050412
  Transmission Date: 20060218
  Serious: Yes (Other)
  Sender: FDA-Public Use
  Company Number: 163-20785-05040262

PATIENT
  Age: 89 Year
  Sex: Female

DRUGS (3)
  1. THALOMID [Suspect]
     Indication: MULTIPLE MYELOMA
     Dosage: 100-200MG, DAILY, ORAL
     Route: 048
     Dates: start: 20040601
  2. COUMADIN [Concomitant]
  3. THALOMID [Suspect]
     Dosage: 100-200 MG, DAILY, ORAL
     Route: 048
     Dates: end: 20050201

REACTIONS (2)
  - DEEP VEIN THROMBOSIS [None]
  - FATIGUE [None]
